FAERS Safety Report 25340745 (Version 2)
Quarter: 2025Q2

REPORT INFORMATION
  Report Type: Report from Study
  Country: US (occurrence: US)
  Receive Date: 20250521
  Receipt Date: 20250619
  Transmission Date: 20250716
  Serious: No
  Sender: SUNOVION
  Company Number: US-SUMITOMO PHARMA SWITZERLAND GMBH-2025SPA005235

PATIENT

DRUGS (2)
  1. ORGOVYX [Suspect]
     Active Substance: RELUGOLIX
     Indication: Prostate cancer
     Route: 048
  2. ORGOVYX [Suspect]
     Active Substance: RELUGOLIX
     Dosage: 120 MG, QD
     Route: 048
     Dates: start: 20250323

REACTIONS (8)
  - Pyrexia [Unknown]
  - Chills [Unknown]
  - Irritability [Unknown]
  - Abdominal pain lower [Unknown]
  - Nausea [Unknown]
  - Hot flush [Unknown]
  - Asthenia [Unknown]
  - Fatigue [Unknown]
